FAERS Safety Report 19980670 (Version 1)
Quarter: 2021Q4

REPORT INFORMATION
  Report Type: Spontaneous
  Country: GB (occurrence: GB)
  Receive Date: 20211021
  Receipt Date: 20211021
  Transmission Date: 20220303
  Serious: Yes (Other)
  Sender: FDA-Public Use
  Company Number: GB-SLATE RUN PHARMACEUTICALS-21GB000723

PATIENT

DRUGS (18)
  1. POTASSIUM CHLORIDE [Suspect]
     Active Substance: POTASSIUM CHLORIDE
     Indication: Mineral supplementation
     Dosage: UNK
     Route: 048
  2. OXYGEN [Concomitant]
     Active Substance: OXYGEN
     Indication: Product used for unknown indication
     Dosage: 2 LITRE
  3. FUROSEMIDE [Concomitant]
     Active Substance: FUROSEMIDE
     Indication: Product used for unknown indication
     Dosage: 20 MILLIGRAM
     Route: 042
  4. DIAMORPHINE [Concomitant]
     Active Substance: DIAMORPHINE
     Indication: Anaesthesia
     Dosage: 300 MICROGRAM
     Route: 042
  5. DIAMORPHINE [Concomitant]
     Active Substance: DIAMORPHINE
     Dosage: 5 MILLIGRAM
     Route: 042
  6. BISOPROLOL [Concomitant]
     Active Substance: BISOPROLOL
     Indication: Product used for unknown indication
     Dosage: 2.5 MILLIGRAM
     Route: 048
  7. MAGNESIUM [Concomitant]
     Active Substance: MAGNESIUM
     Indication: Mineral supplementation
     Route: 042
  8. TINZAPARIN [Concomitant]
     Active Substance: TINZAPARIN
     Indication: Thrombosis prophylaxis
     Dosage: 4500 INTERNATIONAL UNIT, AFTER REMOVAL OF EPIDURAL
     Route: 058
  9. TINZAPARIN [Concomitant]
     Active Substance: TINZAPARIN
     Dosage: 4500 INTERNATIONAL UNIT
     Route: 058
  10. UNSPECIFIED INGREDIENT [Concomitant]
     Active Substance: UNSPECIFIED INGREDIENT
     Indication: Maternal therapy to enhance foetal lung maturity
  11. BUPIVACAINE [Concomitant]
     Active Substance: BUPIVACAINE
     Indication: Anaesthesia
     Dosage: 7.5 MILLIGRAM
     Route: 008
  12. BUPIVACAINE [Concomitant]
     Active Substance: BUPIVACAINE
     Dosage: 5 MILLILITRE
  13. SODIUM LACTATE [Concomitant]
     Active Substance: SODIUM LACTATE
     Indication: Product used for unknown indication
     Dosage: 500 MILLILITRE
  14. PHENYLEPHRINE [Concomitant]
     Active Substance: PHENYLEPHRINE HYDROCHLORIDE
     Indication: Product used for unknown indication
     Dosage: WEANED OFF GRADUALLY
  15. PHENYLEPHRINE [Concomitant]
     Active Substance: PHENYLEPHRINE HYDROCHLORIDE
     Dosage: 30 MILLILITRE, EVERY HOUR
  16. ROPIVACAINE. [Concomitant]
     Active Substance: ROPIVACAINE HYDROCHLORIDE
     Indication: Anaesthesia
     Route: 008
  17. OXYTOCIN [Concomitant]
     Active Substance: OXYTOCIN
     Indication: Tachycardia
     Dosage: 5 INTERNATIONAL UNIT
     Route: 042
  18. OXYTOCIN [Concomitant]
     Active Substance: OXYTOCIN
     Indication: Hypotension

REACTIONS (2)
  - Pulmonary hypertension [Recovered/Resolved]
  - Maternal exposure during pregnancy [Recovered/Resolved]
